FAERS Safety Report 8050168-3 (Version None)
Quarter: 2012Q1

REPORT INFORMATION
  Report Type: 
  Country: None (occurrence: None)
  Receive Date: 20120117
  Receipt Date: 20120109
  Transmission Date: 20120608
  Serious: Yes (Hospitalization)
  Sender: FDA-Public Use
  Company Number: US-MERCK-1112USA00904

PATIENT
  Age: 65 Year
  Sex: Female

DRUGS (1)
  1. COZAAR [Suspect]
     Indication: HYPERTENSION
     Route: 048
     Dates: start: 20071201

REACTIONS (3)
  - LIMB DISCOMFORT [None]
  - BLOOD PRESSURE INCREASED [None]
  - FATIGUE [None]
